FAERS Safety Report 13377802 (Version 6)
Quarter: 2017Q3

REPORT INFORMATION
  Report Type: Report from Study
  Country: US (occurrence: US)
  Receive Date: 20170328
  Receipt Date: 20170807
  Transmission Date: 20171127
  Serious: Yes (Life-Threatening, Hospitalization, Other)
  Sender: FDA-Public Use
  Company Number: US-PFIZER INC-2017125173

PATIENT
  Age: 67 Year
  Sex: Male
  Weight: 72 kg

DRUGS (17)
  1. LOVENOX [Concomitant]
     Active Substance: ENOXAPARIN SODIUM
     Indication: DEEP VEIN THROMBOSIS
     Dosage: 80 MG/0.8 ML, 2X/DAY
     Route: 058
     Dates: start: 20161115, end: 20161122
  2. IPRATROPIUM BROMIDE. [Concomitant]
     Active Substance: IPRATROPIUM BROMIDE
     Indication: NASAL INFLAMMATION
     Dosage: 42 UG, 2X/DAY EA NOSTRIL
     Route: 045
     Dates: start: 201609
  3. COMPAZINE [Concomitant]
     Active Substance: PROCHLORPERAZINE MALEATE
     Indication: VOMITING
  4. REGLAN [Concomitant]
     Active Substance: METOCLOPRAMIDE HYDROCHLORIDE
     Indication: NAUSEA
     Dosage: 10 MG, 1X/DAY
     Route: 048
     Dates: start: 201702, end: 20170219
  5. LEXAPRO [Concomitant]
     Active Substance: ESCITALOPRAM OXALATE
     Indication: ANXIETY
     Dosage: 10 MG, 1X/DAY
     Route: 048
     Dates: start: 201702
  6. COMPAZINE [Concomitant]
     Active Substance: PROCHLORPERAZINE MALEATE
     Indication: NAUSEA
     Dosage: 10 MG, 1X/DAY
     Route: 048
     Dates: start: 20170307
  7. CARBOPLATIN. [Concomitant]
     Active Substance: CARBOPLATIN
     Dosage: D1 EVERY 28 DAYS
     Route: 042
     Dates: start: 20170307
  8. PREDNISONE. [Concomitant]
     Active Substance: PREDNISONE
     Indication: RESPIRATORY TRACT INFECTION
     Dosage: 10 MG, TAPERED DOSE
     Route: 048
     Dates: start: 20161214, end: 20161221
  9. REGLAN [Concomitant]
     Active Substance: METOCLOPRAMIDE HYDROCHLORIDE
     Indication: VOMITING
  10. LEXAPRO [Concomitant]
     Active Substance: ESCITALOPRAM OXALATE
     Indication: DEPRESSION
  11. ZOFRAN [Concomitant]
     Active Substance: ONDANSETRON HYDROCHLORIDE
     Indication: NAUSEA
     Dosage: 8 MG, 1X/DAY
     Route: 048
     Dates: start: 20170307
  12. DALTEPARIN SODIUM [Suspect]
     Active Substance: DALTEPARIN SODIUM
     Indication: DEEP VEIN THROMBOSIS
     Dosage: 150 IU/KG, 1X/DAY
     Route: 058
     Dates: start: 20161122, end: 20170315
  13. DALTEPARIN SODIUM [Suspect]
     Active Substance: DALTEPARIN SODIUM
     Indication: EMBOLISM VENOUS
  14. EMLA [Concomitant]
     Active Substance: LIDOCAINE\PRILOCAINE
     Indication: PREMEDICATION
     Dosage: 2.5-2.2%, AS NEEDED
     Route: 061
     Dates: start: 201510
  15. TAXOL [Concomitant]
     Active Substance: PACLITAXEL
     Dosage: 100 MG/M2, ON D1, 8 AND 15
     Route: 042
     Dates: start: 20170307
  16. LEVOTHYROXINE. [Concomitant]
     Active Substance: LEVOTHYROXINE
     Indication: HYPOTHYROIDISM
     Dosage: 50 UG, 1X/DAY
     Route: 048
     Dates: start: 20161129
  17. ZOFRAN [Concomitant]
     Active Substance: ONDANSETRON HYDROCHLORIDE
     Indication: VOMITING

REACTIONS (36)
  - Pleural effusion [Recovered/Resolved]
  - Fatigue [Not Recovered/Not Resolved]
  - Retroperitoneal haemorrhage [Recovered/Resolved]
  - Blood alkaline phosphatase increased [Recovered/Resolved]
  - Dehydration [Unknown]
  - Chronic kidney disease [Recovered/Resolved]
  - Haemorrhagic anaemia [Recovered/Resolved]
  - Cardiac tamponade [Unknown]
  - Staphylococcal skin infection [Recovered/Resolved]
  - Transaminases increased [Recovered/Resolved]
  - Hypoalbuminaemia [Recovered/Resolved]
  - Lymphocyte count decreased [Recovered/Resolved]
  - Hyponatraemia [Not Recovered/Not Resolved]
  - Hyponatraemia [Not Recovered/Not Resolved]
  - Muscular weakness [Recovered/Resolved]
  - Blood creatinine increased [Recovered/Resolved]
  - Hyperuricaemia [Unknown]
  - Weight increased [Recovered/Resolved]
  - Muscle haemorrhage [Recovered/Resolved]
  - Respiratory failure [Recovered/Resolved]
  - Hypovolaemic shock [Recovered/Resolved]
  - Dyspnoea [Not Recovered/Not Resolved]
  - Urinary retention [Recovered/Resolved]
  - Pneumonia aspiration [Unknown]
  - Hypothyroidism [Unknown]
  - Neutrophil count decreased [Recovered/Resolved]
  - Pneumothorax [Unknown]
  - Pericardial effusion [Unknown]
  - Pain in extremity [Recovered/Resolved]
  - White blood cell count decreased [Recovered/Resolved]
  - Hypocalcaemia [Recovered/Resolved]
  - Sepsis [Unknown]
  - Hypotension [Recovered/Resolved]
  - Hyperkalaemia [Recovered/Resolved]
  - Hyperglycaemia [Recovered/Resolved]
  - International normalised ratio increased [Recovered/Resolved]

NARRATIVE: CASE EVENT DATE: 2017
